FAERS Safety Report 8277516 (Version 3)
Quarter: 2012Q4

REPORT INFORMATION
  Report Type: 
  Country: BR (occurrence: BR)
  Receive Date: 20111207
  Receipt Date: 20121002
  Transmission Date: 20130627
  Serious: Yes (Other)
  Sender: FDA-Public Use
  Company Number: BR-PFIZER INC-2011295693

PATIENT
  Age: 74 Year
  Sex: Male
  Weight: 64.5 kg

DRUGS (5)
  1. LYRICA [Suspect]
     Indication: PAIN
     Dosage: UNK
     Route: 048
     Dates: start: 201110, end: 201111
  2. LYRICA [Suspect]
     Indication: SPINAL COLUMN STENOSIS
     Dosage: 75 mg 1x/day, stopped progressively
     Route: 048
     Dates: start: 20111110, end: 20111119
  3. LYRICA [Suspect]
     Indication: SPINAL DISORDER
  4. LYRICA [Suspect]
     Indication: SPINAL PAIN
  5. LYRICA [Suspect]
     Indication: INTERVERTEBRAL DISC PROTRUSION

REACTIONS (11)
  - Diplopia [Recovered/Resolved]
  - Rhabdomyolysis [Not Recovered/Not Resolved]
  - Weight decreased [Unknown]
  - Pneumonia [Recovered/Resolved]
  - Pain [Unknown]
  - Fatigue [Not Recovered/Not Resolved]
  - Constipation [Unknown]
  - Muscle spasms [Unknown]
  - Dysplasia [Unknown]
  - Hyperhidrosis [Unknown]
  - Hypotonia [Unknown]
